FAERS Safety Report 15350244 (Version 2)
Quarter: 2019Q4

REPORT INFORMATION
  Report Type: Spontaneous
  Country: ES (occurrence: ES)
  Receive Date: 20180905
  Receipt Date: 20191023
  Transmission Date: 20200122
  Serious: Yes (Hospitalization)
  Sender: FDA-Public Use
  Company Number: ES-SUN PHARMACEUTICAL INDUSTRIES LTD-2018RR-183307

PATIENT
  Age: 36 Year
  Sex: Female

DRUGS (5)
  1. ALLOPURINOL. [Suspect]
     Active Substance: ALLOPURINOL
     Indication: HYPERURICAEMIA
     Dosage: 0-1-0 DOSIS UNIDAD FRECUENCIA: 100 MG
     Route: 048
     Dates: start: 20141218, end: 20150327
  2. VALSARTAN. [Concomitant]
     Active Substance: VALSARTAN
     Indication: HYPERTENSION
     Dosage: 1-0-0 DOSIS UNIDAD FRECUENCIA: 80 MG
     Route: 048
     Dates: start: 20141218, end: 20150327
  3. PREDNISONA [Concomitant]
     Active Substance: PREDNISONE
     Indication: GLOMERULONEPHRITIS
     Dosage: 50 MG EN DOSIS DESCENDENTE UNIDAD DE FRECUENCIA:DIA
     Route: 048
     Dates: start: 201407
  4. EDEMOX 250 MG COMPRIMIDOS , 20 COMPRIMIDOS [Concomitant]
     Indication: HYPERTENSION
     Dosage: 0-1-0 DOSIS UNIDAD FRECUENCIA: 250 MG
     Route: 048
     Dates: start: 20141218, end: 20150327
  5. OMEPRAZOL [Concomitant]
     Active Substance: OMEPRAZOLE
     Indication: PROPHYLAXIS AGAINST GASTROINTESTINAL ULCER
     Dosage: 1 CP DOSIS UNIDAD FRECUENCIA: 20 MG
     Route: 048
     Dates: start: 201407

REACTIONS (4)
  - Tubulointerstitial nephritis [Recovered/Resolved]
  - Pancreatitis [Recovered/Resolved]
  - Liver disorder [Recovered/Resolved]
  - Drug reaction with eosinophilia and systemic symptoms [Recovered/Resolved]

NARRATIVE: CASE EVENT DATE: 20150307
